FAERS Safety Report 16447034 (Version 3)
Quarter: 2019Q3

REPORT INFORMATION
  Report Type: Spontaneous
  Country: JP (occurrence: JP)
  Receive Date: 20190618
  Receipt Date: 20190822
  Transmission Date: 20191004
  Serious: Yes (Hospitalization, Other)
  Sender: FDA-Public Use
  Company Number: JP-SHIRE-JP201918186AA

PATIENT

DRUGS (3)
  1. ADVATE [Suspect]
     Active Substance: ANTIHEMOPHILIC FACTOR, HUMAN RECOMBINANT
     Indication: FACTOR VIII DEFICIENCY
     Dosage: 4000 INTERNATIONAL UNIT, 1X/DAY:QD
     Route: 042
     Dates: start: 20170707, end: 20170722
  2. ADVATE [Suspect]
     Active Substance: ANTIHEMOPHILIC FACTOR, HUMAN RECOMBINANT
     Indication: HAEMORRHAGE
     Dosage: 4000 INTERNATIONAL UNIT, 1X/DAY:QD
     Route: 042
     Dates: start: 20170807, end: 20170809
  3. NOVOEIGHT [Concomitant]
     Active Substance: ANTIHEMOPHILIC FACTOR, HUMAN RECOMBINANT
     Indication: IMMUNE TOLERANCE INDUCTION
     Dosage: 9000 INTERNATIONAL UNIT, 1X/DAY:QD
     Route: 065
     Dates: start: 20170810

REACTIONS (3)
  - Muscle haemorrhage [Recovering/Resolving]
  - Haematoma muscle [Recovering/Resolving]
  - Factor VIII inhibition [Not Recovered/Not Resolved]

NARRATIVE: CASE EVENT DATE: 20170805
